FAERS Safety Report 25061224 (Version 2)
Quarter: 2025Q1

REPORT INFORMATION
  Report Type: Spontaneous
  Country: US (occurrence: US)
  Receive Date: 20250310
  Receipt Date: 20250320
  Transmission Date: 20250409
  Serious: Yes (Other)
  Sender: ELI LILLY AND COMPANY
  Company Number: US-ELI_LILLY_AND_COMPANY-US202503005020

PATIENT
  Age: 73 Year
  Sex: Female

DRUGS (1)
  1. PROZAC [Suspect]
     Active Substance: FLUOXETINE HYDROCHLORIDE
     Indication: Depression
     Dosage: 10 MG, DAILY
     Route: 065
     Dates: start: 20240807

REACTIONS (9)
  - Cerebrovascular accident [Unknown]
  - Disorientation [Unknown]
  - Weight increased [Unknown]
  - Illness [Unknown]
  - Off label use [Unknown]
  - Influenza [Unknown]
  - Sluggishness [Unknown]
  - Nausea [Recovered/Resolved]
  - Drug ineffective [Unknown]
